FAERS Safety Report 9762849 (Version 1)
Quarter: 2013Q4

REPORT INFORMATION
  Report Type: Spontaneous
  Country: US (occurrence: US)
  Receive Date: 20131216
  Receipt Date: 20131216
  Transmission Date: 20140711
  Serious: No
  Sender: FDA-Public Use
  Company Number: US-FOUGERA-2013FO000022

PATIENT
  Sex: Female

DRUGS (2)
  1. SOLARAZE [Suspect]
     Indication: ACTINIC KERATOSIS
     Route: 061
     Dates: start: 201301, end: 20130123
  2. SOLARAZE [Suspect]
     Route: 061
     Dates: start: 201211, end: 201211

REACTIONS (5)
  - Application site scab [Not Recovered/Not Resolved]
  - Application site pruritus [Not Recovered/Not Resolved]
  - Application site rash [Not Recovered/Not Resolved]
  - Application site ulcer [Not Recovered/Not Resolved]
  - Inappropriate schedule of drug administration [Recovered/Resolved]
